FAERS Safety Report 8175484-6 (Version None)
Quarter: 2012Q1

REPORT INFORMATION
  Report Type: 
  Country: None (occurrence: None)
  Receive Date: 20120229
  Receipt Date: 20120223
  Transmission Date: 20120608
  Serious: Yes (Hospitalization, Other)
  Sender: FDA-Public Use
  Company Number: US-ASTRAZENECA-2012SE01733

PATIENT
  Age: 47 Year
  Sex: Male

DRUGS (2)
  1. METOPROLOL SUCCINATE [Suspect]
     Route: 065
  2. TOPROL-XL [Suspect]
     Indication: BLOOD PRESSURE MANAGEMENT
     Route: 048

REACTIONS (5)
  - CENTRAL NERVOUS SYSTEM LESION [None]
  - SLEEP DISORDER DUE TO GENERAL MEDICAL CONDITION, INSOMNIA TYPE [None]
  - CARDIAC DISORDER [None]
  - MALAISE [None]
  - INFLUENZA LIKE ILLNESS [None]
